FAERS Safety Report 15861412 (Version 3)
Quarter: 2019Q1

REPORT INFORMATION
  Report Type: Spontaneous
  Country: SE (occurrence: SE)
  Receive Date: 20190124
  Receipt Date: 20190207
  Transmission Date: 20190417
  Serious: Yes (Hospitalization, Other)
  Sender: FDA-Public Use
  Company Number: SE-AMGEN-SWESP2019011435

PATIENT
  Age: 41 Year
  Sex: Female

DRUGS (7)
  1. STESOLID [Concomitant]
     Active Substance: DIAZEPAM
     Indication: PRODUCT USED FOR UNKNOWN INDICATION
     Dosage: UNK
     Route: 065
  2. AIMOVIG [Suspect]
     Active Substance: ERENUMAB-AOOE
     Indication: MIGRAINE
     Dosage: 70 MG, QWK
     Route: 058
     Dates: start: 20190115, end: 20190115
  3. IMERGEN [Concomitant]
     Indication: MIGRAINE
     Dosage: 12 MG, UNK
     Route: 058
     Dates: start: 20180409
  4. LAMICTAL [Concomitant]
     Active Substance: LAMOTRIGINE
     Indication: MIGRAINE
     Dosage: 100 MG, BID
     Route: 048
     Dates: start: 20170102
  5. OMEPRAZOL [Concomitant]
     Active Substance: OMEPRAZOLE
     Indication: SKIN EROSION
     Dosage: 40 MUG, QD
     Route: 048
     Dates: start: 2014
  6. BUSPIRON [Concomitant]
     Active Substance: BUSPIRONE HYDROCHLORIDE
     Indication: ANXIETY
     Dosage: 10 MG, TID
     Route: 048
     Dates: start: 2017
  7. DULOXETINA [Concomitant]
     Active Substance: DULOXETINE
     Indication: DEPRESSION
     Dosage: 60 MG, QD
     Route: 048
     Dates: start: 2009

REACTIONS (2)
  - Epilepsy [Recovered/Resolved]
  - Generalised tonic-clonic seizure [Recovered/Resolved]

NARRATIVE: CASE EVENT DATE: 20190115
